FAERS Safety Report 13596502 (Version 1)
Quarter: 2017Q2

REPORT INFORMATION
  Report Type: Spontaneous
  Country: US (occurrence: US)
  Receive Date: 20170530
  Receipt Date: 20170530
  Transmission Date: 20170830
  Serious: Yes (Death)
  Sender: FDA-Public Use
  Company Number: None

PATIENT
  Age: 59 Year
  Sex: Male
  Weight: 64.8 kg

DRUGS (3)
  1. ZOLOFT [Concomitant]
     Active Substance: SERTRALINE HYDROCHLORIDE
  2. AMLOD-VALSA-HCTZ [Concomitant]
  3. LEVAQUIN [Suspect]
     Active Substance: LEVOFLOXACIN
     Indication: PROSTATITIS
     Route: 048
     Dates: end: 20170404

REACTIONS (7)
  - Confusional state [None]
  - Insomnia [None]
  - Weight decreased [None]
  - Depression [None]
  - Anxiety [None]
  - Reading disorder [None]
  - Drug ineffective [None]

NARRATIVE: CASE EVENT DATE: 20170411
